FAERS Safety Report 7769563-2 (Version None)
Quarter: 2011Q3

REPORT INFORMATION
  Report Type: 
  Country: None (occurrence: None)
  Receive Date: 20110922
  Receipt Date: 20100527
  Transmission Date: 20111222
  Serious: No
  Sender: FDA-Public Use
  Company Number: US-ASTRAZENECA-2010SE44596

PATIENT
  Age: 681 Month
  Sex: Female

DRUGS (13)
  1. CATAPRES-TTS-1 [Concomitant]
     Dosage: 10.1 MG / 24 HR
     Dates: start: 20061016
  2. HYDROCOD/APAP [Concomitant]
     Dosage: 5-500 MG TAB
     Dates: start: 20061023
  3. GEMFIBROZIL [Concomitant]
     Dates: start: 20061110
  4. METHOCARBAMOL [Concomitant]
     Dates: start: 20061006
  5. NORVASC [Concomitant]
     Dates: start: 20061108
  6. PREVACID [Concomitant]
     Route: 048
     Dates: start: 20070121
  7. METHYLPREDNISOLONE [Concomitant]
     Dates: start: 20061016
  8. CYMBALTA [Concomitant]
     Dates: start: 20061025
  9. NEURONTIN [Concomitant]
     Dates: start: 20061201
  10. ASPIRIN [Concomitant]
     Route: 048
     Dates: start: 20070121
  11. ATENOLOL [Concomitant]
     Dates: start: 20061110
  12. SEROQUEL [Suspect]
     Route: 048
     Dates: start: 20061025
  13. HYDROCHLOROTHIAZIDE [Concomitant]
     Route: 048
     Dates: start: 20070121

REACTIONS (6)
  - OBESITY [None]
  - HYPERGLYCAEMIA [None]
  - OVERDOSE [None]
  - HYPERTENSION [None]
  - SLEEP APNOEA SYNDROME [None]
  - PAIN [None]
